FAERS Safety Report 9974481 (Version 1)
Quarter: 2014Q1

REPORT INFORMATION
  Report Type: Report from Study
  Country: US (occurrence: US)
  Receive Date: 20140306
  Receipt Date: 20140306
  Transmission Date: 20141002
  Serious: No
  Sender: FDA-Public Use
  Company Number: US-ABBVIE-13P-163-1158962-00

PATIENT
  Sex: Female

DRUGS (12)
  1. HUMIRA [Suspect]
     Indication: RHEUMATOID ARTHRITIS
     Dates: start: 201212, end: 201303
  2. METHOTREXATE [Concomitant]
     Indication: RHEUMATOID ARTHRITIS
  3. FOLIC ACID [Concomitant]
     Indication: VITAMIN SUPPLEMENTATION
  4. FLEXERIL [Concomitant]
     Indication: MUSCLE SPASMS
  5. LOPRESSOR [Concomitant]
     Indication: HYPERTENSION
  6. DEMADEX [Concomitant]
     Indication: FLUID RETENTION
  7. ASPIRIN [Concomitant]
     Indication: CARDIAC DISORDER
  8. POTASSIUM CHLORIDE [Concomitant]
     Indication: HYPOKALAEMIA
  9. ZYRTEC [Concomitant]
     Indication: SEASONAL ALLERGY
  10. VITAMIN D [Concomitant]
     Indication: VITAMIN SUPPLEMENTATION
  11. MULTIVITAMIN [Concomitant]
     Indication: VITAMIN SUPPLEMENTATION
  12. CALCIUM [Concomitant]
     Indication: MINERAL SUPPLEMENTATION

REACTIONS (2)
  - Sinusitis [Recovered/Resolved]
  - Cystitis [Recovered/Resolved]
